FAERS Safety Report 12356796 (Version 1)
Quarter: 2016Q2

REPORT INFORMATION
  Report Type: Spontaneous
  Country: US (occurrence: US)
  Receive Date: 20160511
  Receipt Date: 20160511
  Transmission Date: 20160815
  Serious: No
  Sender: FDA-Public Use
  Company Number: US-PFIZER INC-2016213955

PATIENT
  Age: 37 Year
  Sex: Female

DRUGS (2)
  1. ASPIRIN. [Suspect]
     Active Substance: ASPIRIN
  2. MORPHINE SULFATE. [Suspect]
     Active Substance: MORPHINE SULFATE

REACTIONS (1)
  - Drug hypersensitivity [Unknown]
